FAERS Safety Report 15433603 (Version 1)
Quarter: 2018Q3

REPORT INFORMATION
  Report Type: Report from Study
  Country: DK (occurrence: DK)
  Receive Date: 20180927
  Receipt Date: 20180927
  Transmission Date: 20181010
  Serious: Yes (Hospitalization)
  Sender: FDA-Public Use
  Company Number: DK-ROCHE-2188977

PATIENT
  Age: 71 Year
  Sex: Male
  Weight: 86.3 kg

DRUGS (12)
  1. DOMPERIDON [Concomitant]
     Active Substance: DOMPERIDONE
     Route: 065
     Dates: start: 20180917
  2. PETHIDIN [Concomitant]
     Active Substance: MEPERIDINE
     Route: 065
     Dates: start: 20180917
  3. PARACETAMOL [Concomitant]
     Active Substance: ACETAMINOPHEN
     Route: 065
     Dates: start: 20180911
  4. RO 6874281 (FAP IL2V MAB) [Suspect]
     Active Substance: RO-6874281
     Indication: RENAL CELL CARCINOMA
     Dosage: LAST DOSE OF PRIOR TO SAE ON 17/SEP/2018
     Route: 042
     Dates: start: 20180917
  5. TAVEGYL [Concomitant]
     Active Substance: CLEMASTINE FUMARATE
     Route: 065
     Dates: start: 20180917
  6. SILDENAFIL. [Concomitant]
     Active Substance: SILDENAFIL
     Route: 065
     Dates: start: 20170717
  7. BEVACIZUMAB. [Suspect]
     Active Substance: BEVACIZUMAB
     Indication: RENAL CELL CARCINOMA
     Dosage: LAST DOSE OF BEVACIZUMAB PRIOR TO SAE ON 17/SEP/2018
     Route: 042
     Dates: start: 20180917
  8. ATEZOLIZUMAB. [Suspect]
     Active Substance: ATEZOLIZUMAB
     Indication: RENAL CELL CARCINOMA
     Dosage: LAST DOSE OF ATEZOLIZUMAB (1200 MG) PRIOR TO SAE ON 17/SEP/2018
     Route: 042
     Dates: start: 20180917
  9. COZAAR COMP [Concomitant]
     Active Substance: HYDROCHLOROTHIAZIDE\LOSARTAN POTASSIUM
     Dosage: 50+12.5 MG
     Route: 065
     Dates: start: 20121106, end: 20180919
  10. INDOMETHACIN. [Concomitant]
     Active Substance: INDOMETHACIN
     Route: 065
     Dates: start: 20180917
  11. RANITIDIN [Concomitant]
     Active Substance: RANITIDINE HYDROCHLORIDE
     Route: 065
     Dates: start: 20180917
  12. ONDANSETRON [Concomitant]
     Active Substance: ONDANSETRON
     Route: 065
     Dates: start: 20180917

REACTIONS (1)
  - Platelet count decreased [Recovered/Resolved]

NARRATIVE: CASE EVENT DATE: 20180919
